FAERS Safety Report 12954961 (Version 1)
Quarter: 2016Q4

REPORT INFORMATION
  Report Type: Spontaneous
  Country: US (occurrence: US)
  Receive Date: 20161117
  Receipt Date: 20161117
  Transmission Date: 20170207
  Serious: No
  Sender: FDA-Public Use
  Company Number: None

PATIENT
  Age: 72 Year
  Sex: Male
  Weight: 83.31 kg

DRUGS (2)
  1. PIPERACILLIN/TAZOBACTAM 3.375 GM AUROMEDICS [Suspect]
     Active Substance: PIPERACILLIN SODIUM\TAZOBACTAM SODIUM
     Indication: OSTEOMYELITIS
     Route: 042
     Dates: start: 20161021, end: 20161030
  2. VANCOMYCIN 1GM APP FRESENIUS KABI USA, LL C [Suspect]
     Active Substance: VANCOMYCIN
     Indication: OSTEOMYELITIS
     Route: 042
     Dates: start: 20161021, end: 20161030

REACTIONS (3)
  - Infusion related reaction [None]
  - Therapy cessation [None]
  - Rash generalised [None]

NARRATIVE: CASE EVENT DATE: 20161030
